FAERS Safety Report 16178937 (Version 2)
Quarter: 2019Q2

REPORT INFORMATION
  Report Type: Spontaneous
  Country: IT (occurrence: IT)
  Receive Date: 20190410
  Receipt Date: 20190506
  Transmission Date: 20190711
  Serious: Yes (Death)
  Sender: FDA-Public Use
  Company Number: IT-TEVA-2019-IT-1036254

PATIENT
  Age: 69 Year

DRUGS (3)
  1. AMIODARONE [Suspect]
     Active Substance: AMIODARONE
     Indication: ARRHYTHMIA
     Dosage: 300 MG
     Route: 040
  2. AMIODARONE [Suspect]
     Active Substance: AMIODARONE
     Dosage: 400 MILLIGRAM DAILY; AT THE DOSE OF 400 MG PER DAY FOR A TOTAL DOSE OF 3550 MG IN 5 DAYS
     Route: 048
  3. AMIODARONE [Suspect]
     Active Substance: AMIODARONE
     Indication: CARDIAC FAILURE CONGESTIVE
     Dosage: CONTINUOUS INFUSION OF 150 MG
     Dates: end: 20140507

REACTIONS (2)
  - Acute respiratory failure [Fatal]
  - Pulmonary toxicity [Fatal]
